FAERS Safety Report 16246453 (Version 1)
Quarter: 2019Q2

REPORT INFORMATION
  Report Type: Spontaneous
  Country: FR (occurrence: FR)
  Receive Date: 20190427
  Receipt Date: 20190427
  Transmission Date: 20190711
  Serious: Yes (Death)
  Sender: FDA-Public Use
  Company Number: FR-AUROBINDO-AUR-APL-2019-022074

PATIENT

DRUGS (3)
  1. TABACUM [Suspect]
     Active Substance: TOBACCO LEAF
     Indication: PRODUCT USED FOR UNKNOWN INDICATION
     Dosage: UNK, UNSPECIFIED
     Route: 055
  2. ALCOHOL. [Suspect]
     Active Substance: ALCOHOL
     Indication: PRODUCT USED FOR UNKNOWN INDICATION
     Dosage: UNK,UNSPECIFIED
     Route: 048
  3. TRAMADOL. [Suspect]
     Active Substance: TRAMADOL
     Indication: PRODUCT USED FOR UNKNOWN INDICATION
     Dosage: UNK,UNSPECIFIED
     Route: 048
     Dates: start: 20170705, end: 20170705

REACTIONS (2)
  - Alcohol abuse [Fatal]
  - Intentional product misuse [Fatal]

NARRATIVE: CASE EVENT DATE: 20170705
